FAERS Safety Report 9291192 (Version 2)
Quarter: 2013Q2

REPORT INFORMATION
  Report Type: Spontaneous
  Country: JP (occurrence: JP)
  Receive Date: 20130515
  Receipt Date: 20130617
  Transmission Date: 20140414
  Serious: Yes (Other)
  Sender: FDA-Public Use
  Company Number: PHHY2013JP047633

PATIENT
  Age: 73 Year
  Sex: Male

DRUGS (6)
  1. CARBOPLATIN [Suspect]
     Indication: LUNG CARCINOMA CELL TYPE UNSPECIFIED STAGE IV
     Dosage: 1 DF, (AUC 6 ON DAY 1)
  2. PACLITAXEL [Suspect]
     Indication: LUNG CARCINOMA CELL TYPE UNSPECIFIED STAGE IV
     Dosage: 80 MG/M2 ON DAY 1, 8 AND 15
  3. BEVACIZUMAB [Suspect]
     Indication: LUNG CARCINOMA CELL TYPE UNSPECIFIED STAGE IV
     Dosage: 15 MG/KG
  4. BEVACIZUMAB [Suspect]
     Dosage: 15 MG/KG, ON DAY 1
  5. PEMETREXED [Concomitant]
  6. GIMERACIL W/OTERACIL POTASSIUM/TEGAFUR [Concomitant]
     Dosage: 120 MG/BODY DAY 1-14

REACTIONS (5)
  - Pneumothorax [Recovered/Resolved]
  - Respiratory disorder [Recovered/Resolved]
  - Tumour necrosis [Unknown]
  - Lung carcinoma cell type unspecified stage IV [Unknown]
  - Malignant neoplasm progression [Unknown]
